FAERS Safety Report 9248774 (Version 1)
Quarter: 2013Q1

REPORT INFORMATION
  Report Type: Spontaneous
  Country: US (occurrence: None)
  Receive Date: 20130305
  Receipt Date: 20130305
  Transmission Date: 20140127
  Serious: Yes (Other)
  Sender: FDA-Public Use
  Company Number: 163-21880-12100376

PATIENT
  Age: 64 Year
  Sex: Female
  Weight: 60.78 kg

DRUGS (7)
  1. REVLIMID [Suspect]
     Indication: PLASMA CELL MYELOMA
     Dosage: 10 MG, 28 IN 28 D, PO
     Route: 048
     Dates: start: 20110125
  2. ZOMETA (ZOLEDRONIC ACID) [Concomitant]
  3. OMEPRAZOLE (OMEPRAZOLE) [Concomitant]
  4. LYRICA (PREGABALIN) [Concomitant]
  5. ACYCLOVIR (ACICLOVIR) [Concomitant]
  6. VITAMINS [Concomitant]
  7. SENOKOT-S (SENOKOT-S) [Concomitant]

REACTIONS (1)
  - Back pain [None]
